FAERS Safety Report 4805864-5 (Version None)
Quarter: 2005Q4

REPORT INFORMATION
  Report Type: 
  Country: None (occurrence: None)
  Receive Date: 20051018
  Receipt Date: 20051018
  Transmission Date: 20060501
  Serious: Yes (Hospitalization)
  Sender: FDA-Public Use
  Company Number: None

PATIENT
  Sex: Male
  Weight: 70.7611 kg

DRUGS (2)
  1. VELCADE [Suspect]
     Indication: MULTIPLE MYELOMA
     Dosage: 1.3MG D1,4,8,11 IV BOLUS
     Route: 040
     Dates: start: 20050923, end: 20050927
  2. THALIDOMIDE 50MG [Suspect]
     Indication: MULTIPLE MYELOMA
     Dosage: 50MG QDAY PO
     Route: 048
     Dates: start: 20050923, end: 20050929

REACTIONS (1)
  - ATRIAL FIBRILLATION [None]
